FAERS Safety Report 9958643 (Version 1)
Quarter: 2014Q1

REPORT INFORMATION
  Report Type: Spontaneous
  Country: US (occurrence: US)
  Receive Date: 20140305
  Receipt Date: 20140305
  Transmission Date: 20141002
  Serious: Yes (Hospitalization, Disabling, Other)
  Sender: FDA-Public Use
  Company Number: US-009507513-1402USA011970

PATIENT
  Age: 65 Year
  Sex: Female

DRUGS (7)
  1. FOSAMAX [Suspect]
     Indication: OSTEOPENIA
     Dosage: 70 MG, QW
     Route: 048
     Dates: start: 2003, end: 20121222
  2. LIPITOR [Concomitant]
  3. DILTIAZEM HYDROCHLORIDE [Concomitant]
     Route: 048
  4. OMEPRAZOLE [Concomitant]
     Route: 048
  5. COZAAR [Concomitant]
     Route: 048
  6. CALCIUM (UNSPECIFIED) [Concomitant]
  7. VITAMIN D (UNSPECIFIED) [Concomitant]

REACTIONS (7)
  - Femur fracture [Unknown]
  - Femur fracture [Unknown]
  - Femur fracture [Unknown]
  - Internal fixation of fracture [Unknown]
  - Surgery [Unknown]
  - Gait disturbance [Unknown]
  - Pain [Unknown]
